FAERS Safety Report 4647246-5 (Version None)
Quarter: 2005Q2

REPORT INFORMATION
  Report Type: 
  Country: None (occurrence: None)
  Receive Date: 20050426
  Receipt Date: 20050418
  Transmission Date: 20051028
  Serious: Yes (Disabling, Other)
  Sender: FDA-Public Use
  Company Number: 2005060403

PATIENT
  Sex: Female
  Weight: 67.1324 kg

DRUGS (8)
  1. LIPITOR [Suspect]
     Indication: BLOOD CHOLESTEROL
     Dosage: 10 MG (10 MG, 1 IN 1 D), ORAL
     Route: 048
     Dates: end: 20050325
  2. DIGOXIN [Concomitant]
  3. RAMIPRIL [Concomitant]
  4. METOPROLOL TARTRATE [Concomitant]
  5. ASPIRIN [Concomitant]
  6. ROSIGLITAZONE MALEATE [Concomitant]
  7. GLIPIZIDE [Concomitant]
  8. LEVOTHYROXINE SODIUM [Concomitant]

REACTIONS (8)
  - ABDOMINAL PAIN UPPER [None]
  - ANOREXIA [None]
  - DIZZINESS [None]
  - MUSCLE SPASMS [None]
  - NAUSEA [None]
  - PLATELET COUNT DECREASED [None]
  - VOMITING [None]
  - WEIGHT DECREASED [None]
